FAERS Safety Report 12133734 (Version 2)
Quarter: 2016Q4

REPORT INFORMATION
  Report Type: Report from Study
  Country: IT (occurrence: IT)
  Receive Date: 20160301
  Receipt Date: 20161027
  Transmission Date: 20170206
  Serious: Yes (Life-Threatening, Hospitalization)
  Sender: FDA-Public Use
  Company Number: IT-ACCORD-038244

PATIENT
  Age: 63 Year
  Sex: Female

DRUGS (5)
  1. PREDNISOLONE. [Concomitant]
     Active Substance: PREDNISOLONE
     Indication: LYMPHOMA
     Route: 042
     Dates: start: 20151223, end: 20151226
  2. CISPLATIN. [Suspect]
     Active Substance: CISPLATIN
     Indication: LYMPHOMA
     Dosage: THIRD CHEMOTHERAPY CYCLE,?LAST DOSE ADMINISTRATION DATE: 23-DEC-2015.
     Route: 042
     Dates: start: 20151223
  3. LONQUEX [Suspect]
     Active Substance: LIPEGFILGRASTIM
     Indication: PROPHYLAXIS
     Dates: start: 20151226, end: 20151226
  4. RITUXIMAB [Suspect]
     Active Substance: RITUXIMAB
     Indication: LYMPHOMA
     Route: 058
     Dates: start: 20151221
  5. CYTARABINE/CYTARABINE HYDROCHLORIDE/CYTARABINE OCFOSFATE [Suspect]
     Active Substance: CYTARABINE
     Indication: LYMPHOMA
     Dosage: THIRD CHEMOTHERAPY CYCLE,?LAST DOSE ADMINISTRATION DATE: 24-DEC-2015. THERAPY DURATION: 2 DAYS
     Route: 042
     Dates: start: 20151223

REACTIONS (2)
  - Pneumonitis [Recovered/Resolved]
  - Thrombocytopenia [Not Recovered/Not Resolved]

NARRATIVE: CASE EVENT DATE: 20160104
